FAERS Safety Report 4637721-1 (Version None)
Quarter: 2005Q2

REPORT INFORMATION
  Report Type: 
  Country: None (occurrence: None)
  Receive Date: 20050325
  Receipt Date: 20041124
  Transmission Date: 20051028
  Serious: No
  Sender: FDA-Public Use
  Company Number: USA041184701

PATIENT
  Age: 81 Year
  Sex: Female
  Weight: 36 kg

DRUGS (4)
  1. FORTEO [Suspect]
     Indication: BONE DENSITY DECREASED
     Dosage: 20 UG/1 DAY
     Dates: start: 20040801
  2. SYNTHROID [Concomitant]
  3. CELEBREX [Concomitant]
  4. CALCIUM GLUCONATE [Concomitant]

REACTIONS (4)
  - BACK PAIN [None]
  - FALL [None]
  - FOOT FRACTURE [None]
  - SPINAL DISORDER [None]
